FAERS Safety Report 7577650-7 (Version None)
Quarter: 2011Q2

REPORT INFORMATION
  Report Type: 
  Country: None (occurrence: None)
  Receive Date: 20110628
  Receipt Date: 20110621
  Transmission Date: 20111010
  Serious: Yes (Death)
  Sender: FDA-Public Use
  Company Number: US-PFIZER INC-2010001676

PATIENT
  Age: 41 Year
  Sex: Male

DRUGS (4)
  1. TRAZODONE HCL [Suspect]
     Dosage: UNK
     Route: 048
     Dates: start: 20080101, end: 20080101
  2. VERAPAMIL HCL [Suspect]
     Dosage: UNK
     Route: 048
     Dates: start: 20080101, end: 20080101
  3. ESZOPICLONE [Suspect]
     Dosage: UNK
     Route: 048
     Dates: start: 20080101, end: 20080101
  4. VENLAFAXINE HCL [Suspect]
     Dosage: UNK
     Route: 048
     Dates: start: 20080101, end: 20080101

REACTIONS (1)
  - COMPLETED SUICIDE [None]
